FAERS Safety Report 8695104 (Version 2)
Quarter: 2013Q4

REPORT INFORMATION
  Report Type: Spontaneous
  Country: US (occurrence: US)
  Receive Date: 20120731
  Receipt Date: 20131101
  Transmission Date: 20140711
  Serious: No
  Sender: FDA-Public Use
  Company Number: US-009507513-1207USA007905

PATIENT
  Age: 72 Year
  Sex: Male

DRUGS (2)
  1. NASONEX [Suspect]
     Dosage: UNK
     Route: 055
  2. FLUTICASONE [Suspect]
     Dosage: UNK
     Route: 055

REACTIONS (6)
  - Chills [Unknown]
  - Hypersensitivity [Unknown]
  - Influenza [Unknown]
  - Oropharyngeal pain [Unknown]
  - Pharyngeal erythema [Unknown]
  - Back pain [Unknown]
